FAERS Safety Report 23735330 (Version 1)
Quarter: 2024Q2

REPORT INFORMATION
  Report Type: Report from Study
  Country: IN (occurrence: None)
  Receive Date: 20240412
  Receipt Date: 20240412
  Transmission Date: 20240715
  Serious: Yes (Death)
  Sender: FDA-Public Use
  Company Number: 2020SE57076

PATIENT
  Age: 71 Year
  Sex: Female

DRUGS (5)
  1. BRILINTA [Suspect]
     Active Substance: TICAGRELOR
     Indication: Cardiac disorder
     Route: 048
     Dates: start: 20191211, end: 20200422
  2. CRESTOR [Concomitant]
     Active Substance: ROSUVASTATIN CALCIUM
     Indication: Blood cholesterol abnormal
     Route: 048
     Dates: end: 20200422
  3. RANOZEX [Concomitant]
     Indication: Cardiac disorder
     Route: 048
     Dates: end: 20200422
  4. PAN 40 [Concomitant]
     Indication: Hyperchlorhydria
     Route: 048
     Dates: end: 20200422
  5. MUCAIN GEL [Concomitant]
     Indication: Hyperchlorhydria
     Route: 048
     Dates: end: 20200422

REACTIONS (2)
  - Hyperhidrosis [Fatal]
  - Discomfort [Fatal]

NARRATIVE: CASE EVENT DATE: 20200422
